FAERS Safety Report 24650301 (Version 1)
Quarter: 2024Q4

REPORT INFORMATION
  Report Type: Spontaneous
  Country: FR (occurrence: FR)
  Receive Date: 20241122
  Receipt Date: 20241122
  Transmission Date: 20250114
  Serious: Yes (Life-Threatening, Other)
  Sender: AUROBINDO
  Company Number: FR-AFSSAPS-AVPA2024000833

PATIENT
  Age: 19 Year
  Sex: Male
  Weight: 57 kg

DRUGS (5)
  1. BROMAZEPAM [Suspect]
     Active Substance: BROMAZEPAM
     Indication: Product used for unknown indication
     Dosage: UNK
     Route: 065
  2. DIAZEPAM [Suspect]
     Active Substance: DIAZEPAM
     Indication: Product used for unknown indication
     Dosage: UNK
     Route: 065
  3. CANNABIS SATIVA SUBSP. INDICA TOP [Suspect]
     Active Substance: CANNABIS SATIVA SUBSP. INDICA TOP
     Indication: Product used for unknown indication
     Dosage: UNK
     Route: 065
  4. OXYBATE [Suspect]
     Active Substance: OXYBATE
     Dates: start: 20240315, end: 20240315
  5. MEPHEDRONE [Suspect]
     Active Substance: MEPHEDRONE

REACTIONS (5)
  - Coma [Recovered/Resolved]
  - Hypothermia [Recovered/Resolved]
  - Drug dependence [Unknown]
  - Bradycardia [Recovered/Resolved]
  - Mydriasis [Recovered/Resolved]

NARRATIVE: CASE EVENT DATE: 20240315
